FAERS Safety Report 6145558-X (Version None)
Quarter: 2009Q2

REPORT INFORMATION
  Report Type: 
  Country: None (occurrence: None)
  Receive Date: 20090402
  Receipt Date: 20090323
  Transmission Date: 20091009
  Serious: Yes (Disabling)
  Sender: FDA-Public Use
  Company Number: 228396

PATIENT
  Age: 59 Year
  Sex: Female
  Weight: 75 kg

DRUGS (7)
  1. PAMIDRONATE DISODIUM [Suspect]
     Indication: MULTIPLE MYELOMA
     Dosage: 60 MG, MONTHLY INTRAVENOUS
     Route: 042
     Dates: start: 20071101
  2. ALFACALCIDOL DIALYSIS [Concomitant]
  3. PERINDOPRIL ERBUMINE [Concomitant]
  4. PHOS-EX [Concomitant]
  5. SEVELAMER [Concomitant]
  6. THALIDOMIDE [Concomitant]
  7. WARFARIN SODIUM [Concomitant]

REACTIONS (3)
  - FOOT FRACTURE [None]
  - OSTEONECROSIS [None]
  - PATHOLOGICAL FRACTURE [None]
